FAERS Safety Report 21435232 (Version 3)
Quarter: 2024Q4

REPORT INFORMATION
  Report Type: Spontaneous
  Country: US (occurrence: US)
  Receive Date: 20221010
  Receipt Date: 20241017
  Transmission Date: 20250115
  Serious: No
  Sender: NOVARTIS
  Company Number: US-NOVARTISTESTPH-NVSC2022US228433

PATIENT
  Sex: Male
  Weight: 71.9 kg

DRUGS (3)
  1. LUTATHERA [Suspect]
     Active Substance: LUTETIUM OXODOTREOTIDE LU-177
     Indication: Small intestine neuroendocrine tumour
     Dosage: 200 MCI (EVERY 8 WEEKS)
     Route: 042
     Dates: start: 20220504, end: 20221108
  2. LUTATHERA [Suspect]
     Active Substance: LUTETIUM OXODOTREOTIDE LU-177
     Dosage: 200 MCI (EVERY 8 WEEKS)
     Route: 042
     Dates: start: 20220504, end: 20221108
  3. LUTATHERA [Suspect]
     Active Substance: LUTETIUM OXODOTREOTIDE LU-177
     Dosage: 200 MCI (EVERY 8 WEEKS)
     Route: 042
     Dates: start: 20220504, end: 20221108

REACTIONS (1)
  - Ill-defined disorder [Unknown]
